FAERS Safety Report 23074413 (Version 3)
Quarter: 2024Q1

REPORT INFORMATION
  Report Type: Report from Study
  Country: FR (occurrence: FR)
  Receive Date: 20231017
  Receipt Date: 20240321
  Transmission Date: 20240410
  Serious: Yes (Other)
  Sender: FDA-Public Use
  Company Number: FR-PFIZER INC-PV202300167234

PATIENT
  Age: 52 Year
  Sex: Female

DRUGS (1)
  1. TOFACITINIB [Suspect]
     Active Substance: TOFACITINIB
     Indication: Proctitis ulcerative
     Dosage: 10 MG, 2X/DAY

REACTIONS (2)
  - Septic shock [Unknown]
  - Cholecystitis [Unknown]
